FAERS Safety Report 7850146-0 (Version None)
Quarter: 2011Q4

REPORT INFORMATION
  Report Type: 
  Country: None (occurrence: None)
  Receive Date: 20111021
  Receipt Date: 20111018
  Transmission Date: 20120403
  Serious: Yes (Death, Hospitalization)
  Sender: FDA-Public Use
  Company Number: CLOF-1000414

PATIENT
  Age: 77 Year
  Sex: Female

DRUGS (7)
  1. ACETAMINOPHEN [Concomitant]
  2. ONDANSETRON [Concomitant]
  3. LEVOTHYROXINE SODIUM [Concomitant]
  4. DAUNORUBICIN HCL [Suspect]
     Indication: ACUTE MYELOID LEUKAEMIA
     Dosage: 105 MG, QDX3, INTRAVENOUS; 105 MG,QDX3, INTRAVENOUS
     Route: 042
     Dates: start: 20090107, end: 20090107
  5. DAUNORUBICIN HCL [Suspect]
     Indication: ACUTE MYELOID LEUKAEMIA
     Dosage: 105 MG, QDX3, INTRAVENOUS; 105 MG,QDX3, INTRAVENOUS
     Route: 042
     Dates: start: 20090109, end: 20090110
  6. ALLOPURINOL [Concomitant]
  7. EVOLTRA (CLOFARABINE) SOLUTION FOR INFUSION [Suspect]
     Indication: ACUTE MYELOID LEUKAEMIA
     Dosage: 42 MG, QDX5, INTRAVENOUS
     Route: 042
     Dates: start: 20090107, end: 20090111

REACTIONS (6)
  - ACUTE MYELOID LEUKAEMIA [None]
  - RENAL FAILURE ACUTE [None]
  - CLOSTRIDIUM TEST POSITIVE [None]
  - NEUTROPENIC SEPSIS [None]
  - MYOCARDIAL ISCHAEMIA [None]
  - CARDIAC ARREST [None]
